FAERS Safety Report 7976082-7 (Version None)
Quarter: 2011Q4

REPORT INFORMATION
  Report Type: 
  Country: None (occurrence: None)
  Receive Date: 20111213
  Receipt Date: 20111011
  Transmission Date: 20120403
  Serious: No
  Sender: FDA-Public Use
  Company Number: US-AMGEN-USASP2011052533

PATIENT
  Sex: Female

DRUGS (1)
  1. ENBREL [Suspect]
     Indication: RHEUMATOID ARTHRITIS
     Dates: start: 20081001, end: 20110101

REACTIONS (6)
  - NIGHT SWEATS [None]
  - FUNGAL INFECTION [None]
  - MALAISE [None]
  - COUGH [None]
  - SWELLING [None]
  - MYALGIA [None]
